FAERS Safety Report 10076540 (Version 1)
Quarter: 2014Q2

REPORT INFORMATION
  Report Type: Spontaneous
  Country: US (occurrence: US)
  Receive Date: 20140414
  Receipt Date: 20140414
  Transmission Date: 20141212
  Serious: No
  Sender: FDA-Public Use
  Company Number: US-PFIZER INC-2014102755

PATIENT
  Age: 78 Year
  Sex: Male
  Weight: 79.37 kg

DRUGS (1)
  1. ADVIL [Suspect]
     Indication: INFLAMMATION
     Dosage: 256 MG, DAILY
     Route: 048

REACTIONS (4)
  - Throat irritation [Unknown]
  - Dysphagia [Unknown]
  - Foreign body [Unknown]
  - Product taste abnormal [Unknown]
